FAERS Safety Report 8791518 (Version 1)
Quarter: 2012Q4

REPORT INFORMATION
  Report Type: Spontaneous
  Country: US (occurrence: None)
  Receive Date: 20120913
  Receipt Date: 20120913
  Transmission Date: 20130627
  Serious: Yes (Hospitalization)
  Sender: FDA-Public Use
  Company Number: 12AE007

PATIENT
  Age: 72 Year
  Sex: Female
  Weight: 53.07 kg

DRUGS (3)
  1. ACETAMINOPHEN [Suspect]
     Indication: SINUS DISORDER
     Dosage: 2 caplets, once, by mouth
     Route: 048
     Dates: start: 20120828
  2. PHENYLEPHRINE [Suspect]
  3. DIVON [Concomitant]

REACTIONS (3)
  - Malaise [None]
  - Haematemesis [None]
  - Migraine [None]
